FAERS Safety Report 7910817-4 (Version None)
Quarter: 2011Q4

REPORT INFORMATION
  Report Type: 
  Country: None (occurrence: None)
  Receive Date: 20111114
  Receipt Date: 20111103
  Transmission Date: 20120403
  Serious: Yes (Hospitalization)
  Sender: FDA-Public Use
  Company Number: GB-BRISTOL-MYERS SQUIBB COMPANY-15641921

PATIENT
  Age: 72 Year
  Sex: Female
  Weight: 41 kg

DRUGS (5)
  1. AMLODIPINE [Concomitant]
     Route: 048
  2. OXALIPLATIN [Suspect]
     Indication: COLORECTAL CANCER
     Dosage: MOST RECENT INFUSION ON 21APR10
     Route: 042
     Dates: start: 20100407
  3. FLUOROURACIL [Suspect]
     Indication: COLORECTAL CANCER
     Dosage: ALSO 3200 MG,INTRAVENOUS(7APR2010)
     Route: 040
     Dates: start: 20100407
  4. CETUXIMAB [Suspect]
     Indication: COLORECTAL CANCER
     Dosage: MOST RECENT INFUSION ON 21APR2010,CETUXIMAB5MG/ML INFUSION DAY 8 TREATMENT INTER
     Route: 042
     Dates: start: 20100407
  5. BENDROFLUAZIDE [Concomitant]
     Route: 048

REACTIONS (1)
  - CEREBRAL ISCHAEMIA [None]
